FAERS Safety Report 5458706-1 (Version None)
Quarter: 2007Q3

REPORT INFORMATION
  Report Type: 
  Country: None (occurrence: None)
  Receive Date: 20070919
  Receipt Date: 20070426
  Transmission Date: 20080115
  Serious: No
  Sender: FDA-Public Use
  Company Number: US-ASTRAZENECA-2007UW08190

PATIENT
  Age: 66 Year
  Sex: Female
  Weight: 65.3 kg

DRUGS (6)
  1. SEROQUEL [Suspect]
     Indication: INSOMNIA
     Route: 048
  2. XANAX [Concomitant]
  3. THYROID MEDICINE [Concomitant]
     Indication: THYROID DISORDER
  4. SPIRIVA [Concomitant]
  5. ALBUTEROL [Concomitant]
  6. PULMICORT RESPULES [Concomitant]

REACTIONS (1)
  - HYPOAESTHESIA [None]
